FAERS Safety Report 8607621-0 (Version None)
Quarter: 2012Q3

REPORT INFORMATION
  Report Type: 
  Country: None (occurrence: None)
  Receive Date: 20120821
  Receipt Date: 20120810
  Transmission Date: 20120928
  Serious: Yes (Hospitalization)
  Sender: FDA-Public Use
  Company Number: US-BAYER-2012-032425

PATIENT
  Age: 33 Year
  Sex: Female
  Weight: 124.72 kg

DRUGS (9)
  1. HALDOL [Concomitant]
  2. NSAID'S [Concomitant]
     Dosage: UNK UNK, PRN
     Route: 048
  3. MULTI-VITAMIN [Concomitant]
  4. YAZ [Suspect]
     Indication: CONTRACEPTION
     Dosage: UNK
     Dates: start: 20100601, end: 20101201
  5. YAZ [Suspect]
     Indication: MENSTRUATION IRREGULAR
  6. INVEGA [Concomitant]
     Indication: SCHIZOPHRENIA
     Dosage: STARTED 2 WEEKS PRIOR TO EVENT
     Route: 048
  7. FLAGYL [Concomitant]
     Indication: VAGINITIS GARDNERELLA
     Dosage: UNK
     Dates: start: 20101001
  8. RISPERDAL [Concomitant]
  9. ABILIFY [Concomitant]

REACTIONS (8)
  - PULMONARY EMBOLISM [None]
  - DEEP VEIN THROMBOSIS [None]
  - GENERAL PHYSICAL HEALTH DETERIORATION [None]
  - PAIN [None]
  - INJURY [None]
  - EMOTIONAL DISTRESS [None]
  - HEART INJURY [None]
  - ANXIETY [None]
